FAERS Safety Report 9277681 (Version 2)
Quarter: 2013Q2

REPORT INFORMATION
  Report Type: Report from Study
  Country: NZ (occurrence: NZ)
  Receive Date: 20130508
  Receipt Date: 20130606
  Transmission Date: 20140414
  Serious: Yes (Life-Threatening, Hospitalization, Other)
  Sender: FDA-Public Use
  Company Number: PHHY2013NZ043992

PATIENT
  Age: 30 Year
  Sex: Male

DRUGS (1)
  1. CLOZARIL [Suspect]
     Indication: PSYCHOTIC DISORDER
     Dosage: UNK
     Dates: start: 20091216, end: 20100104

REACTIONS (11)
  - Acute respiratory distress syndrome [Recovered/Resolved with Sequelae]
  - Pneumonia viral [Recovered/Resolved with Sequelae]
  - Psychotic disorder [Unknown]
  - Respiratory failure [Unknown]
  - Polyneuropathy [Unknown]
  - Mobility decreased [Unknown]
  - General physical health deterioration [Unknown]
  - Jugular vein thrombosis [Unknown]
  - Malaise [Unknown]
  - Confusional state [Unknown]
  - Muscular weakness [Unknown]
